FAERS Safety Report 6184269-1 (Version None)
Quarter: 2009Q2

REPORT INFORMATION
  Report Type: 
  Country: None (occurrence: None)
  Receive Date: 20090508
  Receipt Date: 20090501
  Transmission Date: 20091009
  Serious: No
  Sender: FDA-Public Use
  Company Number: US-B.I. PHARMACEUTICALS,INC./RIDGEFIELD-2009-BP-05577BP

PATIENT
  Sex: Female

DRUGS (18)
  1. SPIRIVA [Suspect]
     Indication: ASTHMA
     Dosage: 18MCG
     Route: 055
     Dates: start: 20070101
  2. MICARDIS HCT [Suspect]
     Indication: HYPERTENSION
     Dates: start: 20080101
  3. SYMBICORT [Concomitant]
     Indication: ASTHMA
  4. SYSTANE [Concomitant]
     Indication: DRY EYE
  5. ISOSORBIDE [Concomitant]
     Indication: CARDIAC DISORDER
  6. RANEXA [Concomitant]
     Indication: CARDIAC DISORDER
  7. ALLEGRA [Concomitant]
  8. ACIPHEX [Concomitant]
     Indication: GASTROOESOPHAGEAL REFLUX DISEASE
  9. PROAIR HFA [Concomitant]
     Indication: ASTHMA
  10. SINGULAIR [Concomitant]
     Indication: ASTHMA
  11. DITROPAN XL [Concomitant]
     Indication: INCONTINENCE
  12. ZOCOR [Concomitant]
     Indication: BLOOD CHOLESTEROL INCREASED
  13. PLAVIX [Concomitant]
     Indication: CARDIAC DISORDER
  14. REGLAN [Concomitant]
     Indication: GASTROOESOPHAGEAL REFLUX DISEASE
  15. NULEV [Concomitant]
     Indication: GASTROOESOPHAGEAL REFLUX DISEASE
  16. NORVASC [Concomitant]
     Indication: HYPERTENSION
  17. VIT B12 [Concomitant]
     Indication: PLATELET COUNT INCREASED
  18. FOLIC ACID [Concomitant]
     Indication: PLATELET COUNT INCREASED

REACTIONS (3)
  - CATARACT [None]
  - ECZEMA [None]
  - VISUAL IMPAIRMENT [None]
